FAERS Safety Report 14525283 (Version 1)
Quarter: 2018Q1

REPORT INFORMATION
  Report Type: Spontaneous
  Country: US (occurrence: US)
  Receive Date: 20180210
  Receipt Date: 20180210
  Transmission Date: 20180509
  Serious: Yes (Disabling)
  Sender: FDA-Public Use
  Company Number: None

PATIENT
  Age: 3 Year
  Sex: Male
  Weight: 15.3 kg

DRUGS (5)
  1. MONTELUKAST 4 MG CHEW TABS [Suspect]
     Active Substance: MONTELUKAST SODIUM
     Indication: MULTIPLE ALLERGIES
     Dosage: ?          QUANTITY:1 TABLET(S);?
     Route: 048
     Dates: start: 20161202, end: 20180101
  2. MONTELUKAST 4 MG CHEW TABS [Suspect]
     Active Substance: MONTELUKAST SODIUM
     Indication: ASTHMA
     Dosage: ?          QUANTITY:1 TABLET(S);?
     Route: 048
     Dates: start: 20161202, end: 20180101
  3. DEPAKOTE [Concomitant]
     Active Substance: DIVALPROEX SODIUM
  4. BUDESIDINE [Concomitant]
  5. SMARTY PANTS VITAMINS [Concomitant]

REACTIONS (4)
  - Sensory loss [None]
  - Anger [None]
  - Seizure [None]
  - Speech disorder [None]
